FAERS Safety Report 14292332 (Version 6)
Quarter: 2018Q4

REPORT INFORMATION
  Report Type: Spontaneous
  Country: DE (occurrence: DE)
  Receive Date: 20171215
  Receipt Date: 20181221
  Transmission Date: 20190204
  Serious: Yes (Hospitalization, Other)
  Sender: FDA-Public Use
  Company Number: DE-009507513-1712DEU004650

PATIENT
  Sex: Male
  Weight: 86 kg

DRUGS (1)
  1. PROPECIA [Suspect]
     Active Substance: FINASTERIDE
     Dosage: 1 MG, DAILY
     Route: 048
     Dates: start: 200610, end: 201211

REACTIONS (37)
  - Drug withdrawal syndrome [Unknown]
  - Seborrhoeic keratosis [Unknown]
  - Viral acanthoma [Unknown]
  - Blood alkaline phosphatase increased [Unknown]
  - Infection [Unknown]
  - Cortisol increased [Unknown]
  - Dermal cyst [Unknown]
  - Hand dermatitis [Unknown]
  - Blood creatine phosphokinase increased [Unknown]
  - Blood luteinising hormone increased [Unknown]
  - Haematochezia [Unknown]
  - Clostridial infection [Unknown]
  - Hypothalamo-pituitary disorder [Unknown]
  - Whipple^s disease [Unknown]
  - Myotonic dystrophy [Unknown]
  - Aspergillus infection [Unknown]
  - Pharyngitis [Unknown]
  - Leukopenia [Recovering/Resolving]
  - Lymphocytosis [Unknown]
  - Somatic symptom disorder [Unknown]
  - Multiple allergies [Unknown]
  - Blood bilirubin increased [Unknown]
  - Aspartate aminotransferase increased [Unknown]
  - Hypogonadism male [Not Recovered/Not Resolved]
  - Faecal calprotectin [Unknown]
  - Pericardial effusion [Unknown]
  - Polymyositis [Unknown]
  - Cachexia [Unknown]
  - Metabolic acidosis [Recovered/Resolved]
  - Eating disorder [Unknown]
  - Tetany [Unknown]
  - Blood lactate dehydrogenase increased [Unknown]
  - Tri-iodothyronine free decreased [Unknown]
  - Malnutrition [Unknown]
  - Abnormal loss of weight [Unknown]
  - Mental disorder [Unknown]
  - Irritable bowel syndrome [Unknown]

NARRATIVE: CASE EVENT DATE: 20070329
